FAERS Safety Report 13374767 (Version 2)
Quarter: 2017Q2

REPORT INFORMATION
  Report Type: Spontaneous
  Country: CH (occurrence: CH)
  Receive Date: 20170327
  Receipt Date: 20170406
  Transmission Date: 20170830
  Serious: Yes (Hospitalization, Other)
  Sender: FDA-Public Use
  Company Number: CH-FERRINGPH-2017FE01320

PATIENT

DRUGS (3)
  1. GYNIPRAL [Concomitant]
     Indication: UTERINE CONTRACTIONS ABNORMAL
     Dosage: UNK
     Route: 064
     Dates: start: 20160718, end: 20160718
  2. PROPESS [Suspect]
     Active Substance: DINOPROSTONE
     Indication: LABOUR INDUCTION
     Dosage: 10 MG, ONCE/SINGLE
     Route: 064
     Dates: start: 20160717, end: 20160718
  3. ELTROXIN [Concomitant]
     Active Substance: LEVOTHYROXINE
     Indication: HYPOTHYROIDISM
     Route: 064

REACTIONS (2)
  - Hypoglycaemia [Recovered/Resolved]
  - Foetal heart rate deceleration abnormality [Recovered/Resolved]

NARRATIVE: CASE EVENT DATE: 20160717
